FAERS Safety Report 10870339 (Version 1)
Quarter: 2015Q1

REPORT INFORMATION
  Report Type: Spontaneous
  Country: US (occurrence: None)
  Receive Date: 20150223
  Receipt Date: 20150223
  Transmission Date: 20150721
  Serious: Yes (Other)
  Sender: FDA-Public Use
  Company Number: 11915

PATIENT

DRUGS (1)
  1. SNORESTOP [Suspect]
     Active Substance: HOMEOPATHICS
     Dosage: 2 TABS/3 NIGHTS

REACTIONS (2)
  - Rash macular [None]
  - Pruritus [None]

NARRATIVE: CASE EVENT DATE: 20141227
